FAERS Safety Report 25111166 (Version 2)
Quarter: 2025Q2

REPORT INFORMATION
  Report Type: Spontaneous
  Country: CA (occurrence: CA)
  Receive Date: 20250324
  Receipt Date: 20250519
  Transmission Date: 20250717
  Serious: Yes (Death)
  Sender: Kenvue
  Company Number: CA-KENVUE-20250305641

PATIENT

DRUGS (6)
  1. TYLENOL [Suspect]
     Active Substance: ACETAMINOPHEN
     Indication: Product used for unknown indication
     Route: 065
  2. TYLENOL [Suspect]
     Active Substance: ACETAMINOPHEN
     Indication: Chest pain
     Route: 048
     Dates: start: 202411
  3. TYLENOL [Suspect]
     Active Substance: ACETAMINOPHEN
     Indication: Pain in extremity
  4. TYLENOL [Suspect]
     Active Substance: ACETAMINOPHEN
     Indication: Headache
  5. UNSPECIFIED INGREDIENT [Concomitant]
     Active Substance: UNSPECIFIED INGREDIENT
     Indication: Pneumonia
     Route: 065
     Dates: start: 202411
  6. UNSPECIFIED INGREDIENT [Concomitant]
     Active Substance: UNSPECIFIED INGREDIENT
     Indication: Constipation
     Route: 065
     Dates: start: 202411

REACTIONS (13)
  - Chest pain [Fatal]
  - Eye discharge [Fatal]
  - Hypophagia [Fatal]
  - Nausea [Fatal]
  - Ocular discomfort [Fatal]
  - Pain in extremity [Fatal]
  - Penile blister [Fatal]
  - Rash [Fatal]
  - Dry eye [Fatal]
  - Vomiting [Fatal]
  - Pruritus [Fatal]
  - Hyperhidrosis [Fatal]
  - Illusion [Fatal]

NARRATIVE: CASE EVENT DATE: 20241101
